FAERS Safety Report 6330797-5 (Version None)
Quarter: 2009Q3

REPORT INFORMATION
  Report Type: 
  Country: None (occurrence: None)
  Receive Date: 20090827
  Receipt Date: 20090820
  Transmission Date: 20100115
  Serious: Yes (Hospitalization, Other)
  Sender: FDA-Public Use
  Company Number: PHEH2008US06030

PATIENT
  Sex: Female

DRUGS (7)
  1. VIVELLE [Suspect]
     Indication: HORMONE REPLACEMENT THERAPY
     Route: 062
  2. PREMPRO [Suspect]
  3. PREMARIN [Suspect]
  4. ESTROPIPATE [Suspect]
  5. OGEN [Suspect]
  6. STEROIDS NOS [Concomitant]
  7. PREVACID [Concomitant]

REACTIONS (15)
  - ANAEMIA [None]
  - BREAST CANCER [None]
  - BREAST LUMP REMOVAL [None]
  - COUGH [None]
  - DIZZINESS [None]
  - GAIT DISTURBANCE [None]
  - HYPONATRAEMIA [None]
  - INSOMNIA [None]
  - RENAL FAILURE ACUTE [None]
  - SEPSIS [None]
  - SKIN ULCER [None]
  - SYNCOPE [None]
  - URINARY INCONTINENCE [None]
  - URINARY TRACT INFECTION [None]
  - WEIGHT DECREASED [None]
